FAERS Safety Report 17267150 (Version 3)
Quarter: 2020Q1

REPORT INFORMATION
  Report Type: Spontaneous
  Country: DE (occurrence: DE)
  Receive Date: 20200114
  Receipt Date: 20200312
  Transmission Date: 20200409
  Serious: Yes (Other)
  Sender: FDA-Public Use
  Company Number: PHHY2019DE068033

PATIENT
  Age: 70 Year
  Sex: Female

DRUGS (9)
  1. AFINITOR [Suspect]
     Active Substance: EVEROLIMUS
     Dosage: 7.5 MG
     Route: 065
  2. AFINITOR [Suspect]
     Active Substance: EVEROLIMUS
     Indication: BREAST CANCER METASTATIC
     Dosage: UNK
     Route: 065
     Dates: start: 201902
  3. LANTUS [Concomitant]
     Active Substance: INSULIN GLARGINE
     Indication: TYPE 2 DIABETES MELLITUS
     Dosage: UNK
     Route: 065
  4. AFINITOR [Suspect]
     Active Substance: EVEROLIMUS
     Dosage: 10 MG
     Route: 065
     Dates: start: 2019
  5. EXEMESTANE. [Suspect]
     Active Substance: EXEMESTANE
     Indication: BREAST CANCER METASTATIC
     Dosage: UNK
     Route: 065
     Dates: start: 201901
  6. MAGNESIUM [Concomitant]
     Active Substance: MAGNESIUM
     Indication: ARRHYTHMIA
     Dosage: UNK
     Route: 065
  7. HUMALOG [Concomitant]
     Active Substance: INSULIN LISPRO
     Indication: TYPE 2 DIABETES MELLITUS
     Dosage: UNK
     Route: 065
  8. XGEVA [Concomitant]
     Active Substance: DENOSUMAB
     Indication: PRODUCT USED FOR UNKNOWN INDICATION
     Dosage: UNK
     Route: 065
  9. GLIMEPIRID [Concomitant]
     Active Substance: GLIMEPIRIDE
     Indication: TYPE 2 DIABETES MELLITUS
     Dosage: 2 MG, QD
     Route: 065

REACTIONS (13)
  - Breast cancer metastatic [Unknown]
  - Stomatitis [Unknown]
  - Epistaxis [Unknown]
  - Haematochezia [Unknown]
  - Malignant neoplasm progression [Unknown]
  - Hepatomegaly [Unknown]
  - Mucous stools [Not Recovered/Not Resolved]
  - Haematochezia [Recovered/Resolved]
  - Contusion [Unknown]
  - Pneumonitis [Unknown]
  - Carbohydrate antigen 15-3 increased [Unknown]
  - Gait disturbance [Unknown]
  - Platelet count decreased [Unknown]
